FAERS Safety Report 23773360 (Version 2)
Quarter: 2024Q3

REPORT INFORMATION
  Report Type: Spontaneous
  Country: GB (occurrence: GB)
  Receive Date: 20240423
  Receipt Date: 20240905
  Transmission Date: 20241017
  Serious: Yes (Death, Life-Threatening, Hospitalization, Disabling, Other)
  Sender: PFIZER
  Company Number: None

PATIENT
  Age: 79 Year
  Sex: Female
  Weight: 63 kg

DRUGS (9)
  1. AZITHROMYCIN [Interacting]
     Active Substance: AZITHROMYCIN
     Indication: Infection prophylaxis
     Dosage: 250 MG, ALTERNATE DAY
     Dates: start: 20150501, end: 20240415
  2. EDOXABAN [Interacting]
     Active Substance: EDOXABAN
     Indication: Atrial fibrillation
     Dosage: 60 MG, DAILY
     Dates: start: 20190930, end: 20240415
  3. LANSOPRAZOLE [Concomitant]
     Active Substance: LANSOPRAZOLE
  4. MONTELUKAST [Concomitant]
     Active Substance: MONTELUKAST SODIUM
     Indication: Asthma
  5. PREDNISOLONE [Concomitant]
     Active Substance: PREDNISOLONE
  6. RAMIPRIL [Concomitant]
     Active Substance: RAMIPRIL
  7. ALBUTEROL [Concomitant]
     Active Substance: ALBUTEROL
  8. SIMVASTATIN [Concomitant]
     Active Substance: SIMVASTATIN
  9. SYMBICORT [Concomitant]
     Active Substance: BUDESONIDE\FORMOTEROL FUMARATE DIHYDRATE
     Indication: Asthma

REACTIONS (4)
  - Subarachnoid haemorrhage [Fatal]
  - Drug interaction [Unknown]
  - Creatinine renal clearance decreased [Unknown]
  - Off label use [Unknown]

NARRATIVE: CASE EVENT DATE: 20150501
